FAERS Safety Report 4305669-8 (Version None)
Quarter: 2004Q1

REPORT INFORMATION
  Report Type: 
  Country: None (occurrence: None)
  Receive Date: 20040226
  Receipt Date: 20040107
  Transmission Date: 20041129
  Serious: Yes (Hospitalization)
  Sender: FDA-Public Use
  Company Number: US-BRISTOL-MYERS SQUIBB COMPANY-12472338

PATIENT
  Age: 17 Year
  Sex: Male
  Weight: 66 kg

DRUGS (3)
  1. ABILIFY [Suspect]
     Indication: BIPOLAR DISORDER
     Dosage: DOSE INCREASED TO 20 MG ABOUT 1 MONTH AGO.
     Route: 048
     Dates: start: 20031101
  2. LITHIUM CARBONATE [Concomitant]
     Dosage: 450 MG IN THE MORNING; 675 MG IN THE EVENING
  3. NEURONTIN [Concomitant]

REACTIONS (2)
  - MUSCLE SPASMS [None]
  - TREMOR [None]
